FAERS Safety Report 15234434 (Version 3)
Quarter: 2018Q3

REPORT INFORMATION
  Report Type: Spontaneous
  Country: DE (occurrence: DE)
  Receive Date: 20180803
  Receipt Date: 20180907
  Transmission Date: 20181010
  Serious: Yes (Other)
  Sender: FDA-Public Use
  Company Number: DE-BEH-2018093361

PATIENT
  Age: 49 Year
  Sex: Female
  Weight: 85 kg

DRUGS (67)
  1. BERINERT [Suspect]
     Active Substance: HUMAN C1-ESTERASE INHIBITOR
     Dosage: 1500 IU, TOT
     Route: 042
     Dates: start: 20180320
  2. BERINERT [Suspect]
     Active Substance: HUMAN C1-ESTERASE INHIBITOR
     Dosage: 1500 IU, TOT
     Route: 042
     Dates: start: 20180415
  3. BERINERT [Suspect]
     Active Substance: HUMAN C1-ESTERASE INHIBITOR
     Dosage: 1500 IU, TOT
     Route: 042
     Dates: start: 20180502
  4. PALEXIA [Concomitant]
     Active Substance: TAPENTADOL HYDROCHLORIDE
     Dosage: 150 MG, BID
     Route: 065
  5. SALBUHEXAL                         /00139501/ [Concomitant]
     Indication: ASTHMA
  6. DEKRISTOL [Concomitant]
     Active Substance: CHOLECALCIFEROL
     Route: 065
  7. BERINERT [Suspect]
     Active Substance: HUMAN C1-ESTERASE INHIBITOR
     Dosage: 1500 IU, TOT
     Route: 042
     Dates: start: 20180219
  8. BERINERT [Suspect]
     Active Substance: HUMAN C1-ESTERASE INHIBITOR
     Dosage: 1500 IU, TOT
     Route: 042
     Dates: start: 20180225
  9. BERINERT [Suspect]
     Active Substance: HUMAN C1-ESTERASE INHIBITOR
     Dosage: 1500 IU EVERY 3 DAYS, UNK
     Route: 042
     Dates: start: 20180308, end: 20180314
  10. BERINERT [Suspect]
     Active Substance: HUMAN C1-ESTERASE INHIBITOR
     Dosage: 1500 IU, TOT
     Route: 042
     Dates: start: 20180410
  11. BERINERT [Suspect]
     Active Substance: HUMAN C1-ESTERASE INHIBITOR
     Dosage: 1500 IU, TOT
     Route: 042
     Dates: start: 20180526
  12. BERINERT [Suspect]
     Active Substance: HUMAN C1-ESTERASE INHIBITOR
     Dosage: 1500 IU, TOT
     Route: 042
     Dates: start: 20180723
  13. BERINERT [Suspect]
     Active Substance: HUMAN C1-ESTERASE INHIBITOR
     Dosage: 1500 IU, TOT
     Route: 042
     Dates: start: 20180726
  14. MIRTAZAPIN [Concomitant]
     Active Substance: MIRTAZAPINE
     Dosage: 30 MG, QD
     Route: 065
  15. BERINERT [Suspect]
     Active Substance: HUMAN C1-ESTERASE INHIBITOR
     Indication: PROPHYLAXIS
     Dosage: 1500 IU, BIW
     Route: 042
     Dates: start: 20180320, end: 201804
  16. BERINERT [Suspect]
     Active Substance: HUMAN C1-ESTERASE INHIBITOR
     Dosage: 1500 IU EVERY 3 DAYS, UNK
     Route: 042
     Dates: start: 20180403, end: 20180409
  17. BERINERT [Suspect]
     Active Substance: HUMAN C1-ESTERASE INHIBITOR
     Dosage: 1500 IU, TOT
     Route: 042
     Dates: start: 20180413
  18. BERINERT [Suspect]
     Active Substance: HUMAN C1-ESTERASE INHIBITOR
     Dosage: 1500 IU, TOT
     Route: 042
     Dates: start: 20180416
  19. BERINERT [Suspect]
     Active Substance: HUMAN C1-ESTERASE INHIBITOR
     Dosage: 1500 IU, TOT
     Route: 042
     Dates: start: 20180419
  20. BERINERT [Suspect]
     Active Substance: HUMAN C1-ESTERASE INHIBITOR
     Dosage: 1500 IU, TOT
     Route: 042
     Dates: start: 20180426
  21. BERINERT [Suspect]
     Active Substance: HUMAN C1-ESTERASE INHIBITOR
     Dosage: 1500 IU, TOT
     Route: 042
     Dates: start: 20180613
  22. BERINERT [Suspect]
     Active Substance: HUMAN C1-ESTERASE INHIBITOR
     Indication: HEREDITARY ANGIOEDEMA
     Dosage: 1500 IU, BIW
     Route: 042
     Dates: start: 20180203, end: 201803
  23. BERINERT [Suspect]
     Active Substance: HUMAN C1-ESTERASE INHIBITOR
     Dosage: 1500 IU, BIW
     Route: 042
     Dates: start: 20180419
  24. BERINERT [Suspect]
     Active Substance: HUMAN C1-ESTERASE INHIBITOR
     Dosage: 1500 IU, TOT
     Route: 042
     Dates: start: 20180301
  25. BERINERT [Suspect]
     Active Substance: HUMAN C1-ESTERASE INHIBITOR
     Dosage: 1500 IU, TOT
     Route: 042
     Dates: start: 20180315
  26. BERINERT [Suspect]
     Active Substance: HUMAN C1-ESTERASE INHIBITOR
     Dosage: 1500 IU, TOT
     Route: 042
     Dates: start: 20180329
  27. BERINERT [Suspect]
     Active Substance: HUMAN C1-ESTERASE INHIBITOR
     Dosage: 1500 IU, QD
     Route: 042
     Dates: start: 20180616, end: 20180618
  28. BERINERT [Suspect]
     Active Substance: HUMAN C1-ESTERASE INHIBITOR
     Dosage: 1500 IU, TOT
     Route: 042
     Dates: start: 20180709
  29. MELPERON?RATIOPHARM [Concomitant]
     Dosage: 25 MG, QD
     Route: 065
  30. KREON                              /00014701/ [Concomitant]
     Active Substance: PANCRELIPASE
     Dosage: 3 DF, TID
     Route: 065
  31. SUMATRIPTAN. [Concomitant]
     Active Substance: SUMATRIPTAN
     Indication: MIGRAINE
     Dosage: 50 MG, PRN
     Route: 065
  32. ANAPEN                             /00003901/ [Concomitant]
     Active Substance: EPINEPHRINE
     Dosage: 300 ?G, PRN
     Route: 065
  33. BERINERT [Suspect]
     Active Substance: HUMAN C1-ESTERASE INHIBITOR
     Dosage: 1500 IU, TOT
     Route: 042
     Dates: start: 20180223
  34. BERINERT [Suspect]
     Active Substance: HUMAN C1-ESTERASE INHIBITOR
     Dosage: 1500 IU, TOT
     Route: 042
     Dates: start: 20180323
  35. BERINERT [Suspect]
     Active Substance: HUMAN C1-ESTERASE INHIBITOR
     Dosage: 1500 IU EVERY 3 DAYS, UNK
     Route: 042
     Dates: start: 20180507, end: 20180516
  36. BERINERT [Suspect]
     Active Substance: HUMAN C1-ESTERASE INHIBITOR
     Dosage: 1500 IU, TOT
     Route: 042
     Dates: start: 20180608
  37. BERINERT [Suspect]
     Active Substance: HUMAN C1-ESTERASE INHIBITOR
     Dosage: 1500 IU, QOD
     Route: 042
     Dates: start: 20180625, end: 20180702
  38. BERINERT [Suspect]
     Active Substance: HUMAN C1-ESTERASE INHIBITOR
     Dosage: 1500 IU, TOT
     Route: 042
     Dates: start: 20180706
  39. RANITIDIN BASICS [Concomitant]
     Dosage: 300 MG, QD
     Route: 065
  40. QUETIAPIN [Concomitant]
     Active Substance: QUETIAPINE
     Dosage: 150 MG, QD
     Route: 065
  41. TORASEMID [Concomitant]
     Active Substance: TORSEMIDE
     Dosage: 7.5 MG, QD
     Route: 065
  42. IMIGRAN                            /01044801/ [Concomitant]
     Active Substance: SUMATRIPTAN
     Indication: MIGRAINE
     Dosage: 20 MG, PRN
     Route: 045
  43. BERINERT [Suspect]
     Active Substance: HUMAN C1-ESTERASE INHIBITOR
     Dosage: 1500 IU, TOT
     Route: 042
     Dates: start: 20180304
  44. BERINERT [Suspect]
     Active Substance: HUMAN C1-ESTERASE INHIBITOR
     Dosage: 1500 IU, TOT
     Route: 042
     Dates: start: 20180504
  45. BERINERT [Suspect]
     Active Substance: HUMAN C1-ESTERASE INHIBITOR
     Dosage: 1500 IU, TOT
     Route: 042
     Dates: start: 20180518
  46. BERINERT [Suspect]
     Active Substance: HUMAN C1-ESTERASE INHIBITOR
     Dosage: 1500 IU, TOT
     Route: 042
     Dates: start: 20180521
  47. BERINERT [Suspect]
     Active Substance: HUMAN C1-ESTERASE INHIBITOR
     Dosage: 1500 IU, TOT
     Route: 042
     Dates: start: 20180604
  48. BERINERT [Suspect]
     Active Substance: HUMAN C1-ESTERASE INHIBITOR
     Dosage: 1500 IU, TOT
     Route: 042
     Dates: start: 20180708
  49. TAPENTADOL [Concomitant]
     Active Substance: TAPENTADOL
     Dosage: 50 MG PRN, 2 X DAILY
     Route: 065
  50. PANTOPRAZOL [Concomitant]
     Active Substance: PANTOPRAZOLE SODIUM
     Dosage: 40 MG, QD
     Route: 065
  51. SALBUHEXAL                         /00139501/ [Concomitant]
     Indication: DYSPNOEA
     Route: 065
  52. BERINERT [Suspect]
     Active Substance: HUMAN C1-ESTERASE INHIBITOR
     Dosage: 1500 IU EVERY 3 DAYS, UNK
     Route: 042
     Dates: start: 20180203, end: 20180215
  53. BERINERT [Suspect]
     Active Substance: HUMAN C1-ESTERASE INHIBITOR
     Dosage: 1500 IU, TOT
     Route: 042
     Dates: start: 20180318
  54. BERINERT [Suspect]
     Active Substance: HUMAN C1-ESTERASE INHIBITOR
     Dosage: 1500 IU, TOT
     Route: 042
     Dates: start: 20180429
  55. BERINERT [Suspect]
     Active Substance: HUMAN C1-ESTERASE INHIBITOR
     Dosage: 1500 IU EVERY 2 DAYS, UNK
     Route: 042
     Dates: start: 20180530, end: 20180603
  56. BERINERT [Suspect]
     Active Substance: HUMAN C1-ESTERASE INHIBITOR
     Dosage: 1500 IU, TOT
     Route: 042
     Dates: start: 20180622
  57. BERINERT [Suspect]
     Active Substance: HUMAN C1-ESTERASE INHIBITOR
     Dosage: 1500 IU, TOT
     Route: 042
     Dates: start: 20180716
  58. BERINERT [Suspect]
     Active Substance: HUMAN C1-ESTERASE INHIBITOR
     Dosage: 1500 IU, TOT
     Route: 042
     Dates: start: 20180719
  59. FIRAZYR [Concomitant]
     Active Substance: ICATIBANT ACETATE
     Indication: ANGIOEDEMA
     Dosage: 30 MG, PRN
     Route: 058
  60. SYMBICORT [Concomitant]
     Active Substance: BUDESONIDE\FORMOTEROL FUMARATE DIHYDRATE
     Dosage: 1 DF, BID (160/4.5 ?G/DOSE)
     Route: 065
  61. MOVICOL [Concomitant]
     Active Substance: POLYETHYLENE GLYCOL 3350\POTASSIUM CHLORIDE\SODIUM BICARBONATE\SODIUM CHLORIDE
     Dosage: 1 POUCH, QD
     Route: 065
  62. BERINERT [Suspect]
     Active Substance: HUMAN C1-ESTERASE INHIBITOR
     Dosage: 1500 IU, TOT
     Route: 042
     Dates: start: 20180422
  63. BERINERT [Suspect]
     Active Substance: HUMAN C1-ESTERASE INHIBITOR
     Dosage: 1500 IU, TOT
     Route: 042
     Dates: start: 20180523
  64. BERINERT [Suspect]
     Active Substance: HUMAN C1-ESTERASE INHIBITOR
     Dosage: 1500 IU, TOT
     Route: 042
     Dates: start: 20180712
  65. TOPAMAX [Concomitant]
     Active Substance: TOPIRAMATE
     Dosage: 50 MG, BID
     Route: 065
  66. BISOPROLOL [Concomitant]
     Active Substance: BISOPROLOL
     Dosage: 2.5 MG, QD
     Route: 065
  67. LAXOBERAL [Concomitant]
     Active Substance: SODIUM PICOSULFATE
     Dosage: 20 DROPS, QD
     Route: 065

REACTIONS (1)
  - Hepatitis E antibody positive [Unknown]
